FAERS Safety Report 7065740-7 (Version None)
Quarter: 2010Q4

REPORT INFORMATION
  Report Type: 
  Country: None (occurrence: None)
  Receive Date: 20101027
  Receipt Date: 20101021
  Transmission Date: 20110411
  Serious: Yes (Other)
  Sender: FDA-Public Use
  Company Number: DE-ROCHE-736112

PATIENT
  Sex: Female

DRUGS (2)
  1. AVASTIN [Suspect]
     Indication: BREAST CANCER
     Dosage: UNTIL NOV 2009 IN COMBINATION WITH PACLITAXEL, LATER AS MONOTHERAPY
     Route: 065
     Dates: start: 20090701, end: 20100501
  2. PACLITAXEL [Concomitant]
     Indication: BREAST CANCER
     Dosage: IN COMBINATION WITH BEVACIZUMAB
     Dates: start: 20090701, end: 20091101

REACTIONS (2)
  - APHONIA [None]
  - VOCAL CORD DISORDER [None]
